FAERS Safety Report 8621446 (Version 2)
Quarter: 2012Q4

REPORT INFORMATION
  Report Type: 
  Country: FR (occurrence: FR)
  Receive Date: 20120619
  Receipt Date: 20120925
  Transmission Date: 20130627
  Serious: Yes (Hospitalization)
  Sender: FDA-Public Use
  Company Number: FR-ELI_LILLY_AND_COMPANY-FR201206002634

PATIENT
  Age: 78 Year
  Sex: Female

DRUGS (14)
  1. FORSTEO [Suspect]
     Indication: OSTEOPOROTIC FRACTURE
     Dosage: 20 ug, qd
     Route: 058
     Dates: start: 20111219, end: 20120521
  2. ALDALIX [Concomitant]
     Dosage: UNK, 3/W
     Route: 065
  3. CARDENSIEL [Concomitant]
     Dosage: 1.25 DF, bid
     Route: 065
  4. HAVLANE [Concomitant]
     Dosage: UNK, qd
  5. EZETROL [Concomitant]
     Dosage: UNK, qd
     Route: 065
  6. XANAX [Concomitant]
  7. INIPOMP [Concomitant]
  8. ATACAND [Concomitant]
  9. ZYLORIC [Concomitant]
  10. CACIT [Concomitant]
  11. LAROXYL [Concomitant]
     Dosage: 6 DF, qd
  12. LEVOTHYROX [Concomitant]
  13. KARDEGIC [Concomitant]
  14. PLAVIX [Concomitant]

REACTIONS (2)
  - Iliac artery occlusion [Unknown]
  - Pain [Unknown]
